FAERS Safety Report 12744457 (Version 1)
Quarter: 2016Q3

REPORT INFORMATION
  Report Type: Spontaneous
  Country: US (occurrence: US)
  Receive Date: 20160914
  Receipt Date: 20160914
  Transmission Date: 20161109
  Serious: No
  Sender: FDA-Public Use
  Company Number: US-JAZZ-2016-US-009278

PATIENT
  Age: 37 Year
  Sex: Female

DRUGS (32)
  1. XYREM [Suspect]
     Active Substance: SODIUM OXYBATE
     Indication: NARCOLEPSY
     Dosage: 2.25 G, BID
     Route: 048
     Dates: start: 201106, end: 201109
  2. MULTIVITAMIN [Concomitant]
     Active Substance: VITAMINS
  3. XYREM [Suspect]
     Active Substance: SODIUM OXYBATE
     Dosage: 2.25 G, BID
     Route: 048
     Dates: start: 201311, end: 2013
  4. AZELASTINE [Concomitant]
     Active Substance: AZELASTINE
  5. XYREM [Suspect]
     Active Substance: SODIUM OXYBATE
     Dosage: 2.25 G, BID
     Route: 048
     Dates: start: 201310, end: 201310
  6. OLANZAPINE. [Concomitant]
     Active Substance: OLANZAPINE
  7. DICYCLOMINE [Concomitant]
     Active Substance: DICYCLOMINE HYDROCHLORIDE
  8. PROAIR HFA [Concomitant]
     Active Substance: ALBUTEROL SULFATE
  9. XYREM [Suspect]
     Active Substance: SODIUM OXYBATE
     Indication: CATAPLEXY
     Dosage: 2.5 G, BID
     Route: 048
     Dates: start: 201109, end: 2012
  10. LEVOCETIRIZINE [Concomitant]
     Active Substance: LEVOCETIRIZINE
  11. METFORMIN HYDROCHLORIDE. [Concomitant]
     Active Substance: METFORMIN HYDROCHLORIDE
  12. OMEPRAZOLE DR [Concomitant]
     Active Substance: OMEPRAZOLE
  13. EPIPEN [Concomitant]
     Active Substance: EPINEPHRINE
  14. FLONASE [Concomitant]
     Active Substance: FLUTICASONE PROPIONATE
  15. LITHIUM CARBONATE ER [Concomitant]
     Active Substance: LITHIUM CARBONATE
  16. METHYLPHENIDATE CD [Concomitant]
     Active Substance: METHYLPHENIDATE HYDROCHLORIDE
  17. MONTELUKAST SODIUM. [Concomitant]
     Active Substance: MONTELUKAST SODIUM
  18. VIIBRYD [Concomitant]
     Active Substance: VILAZODONE HYDROCHLORIDE
  19. DOXEPIN [Concomitant]
     Active Substance: DOXEPIN
  20. ATORVASTATIN [Concomitant]
     Active Substance: ATORVASTATIN
  21. LISINOPRIL. [Concomitant]
     Active Substance: LISINOPRIL
  22. XYREM [Suspect]
     Active Substance: SODIUM OXYBATE
     Dosage: 2.5 G, BID
     Route: 048
     Dates: start: 201605
  23. AZELASTINE HCL [Concomitant]
     Active Substance: AZELASTINE HYDROCHLORIDE
  24. ESTRADIOL. [Concomitant]
     Active Substance: ESTRADIOL
  25. LOVAZA [Concomitant]
     Active Substance: OMEGA-3-ACID ETHYL ESTERS
  26. XYREM [Suspect]
     Active Substance: SODIUM OXYBATE
     Dosage: 2.25 G, BID
     Route: 048
     Dates: start: 201207, end: 2012
  27. XYREM [Suspect]
     Active Substance: SODIUM OXYBATE
     Dosage: DOSE ADJUSTMENTS
  28. ATENOLOL. [Concomitant]
     Active Substance: ATENOLOL
  29. CLONAZEPAM. [Concomitant]
     Active Substance: CLONAZEPAM
  30. CYMBALTA [Concomitant]
     Active Substance: DULOXETINE HYDROCHLORIDE
  31. LEVALBUTEROL. [Concomitant]
     Active Substance: LEVALBUTEROL
  32. LEVOTHYROXINE. [Concomitant]
     Active Substance: LEVOTHYROXINE

REACTIONS (1)
  - Rubber sensitivity [Unknown]

NARRATIVE: CASE EVENT DATE: 201605
